FAERS Safety Report 5758682-8 (Version None)
Quarter: 2008Q2

REPORT INFORMATION
  Report Type: 
  Country: None (occurrence: None)
  Receive Date: 20080603
  Receipt Date: 20080603
  Transmission Date: 20081010
  Serious: Yes (Hospitalization)
  Sender: FDA-Public Use
  Company Number: None

PATIENT
  Age: 83 Year
  Sex: Male
  Weight: 78.3 kg

DRUGS (3)
  1. LISINOPRIL [Suspect]
     Indication: HYPERTENSION
     Dosage: 40 MG HS PO
     Route: 048
     Dates: start: 20070524, end: 20080508
  2. POTASSIUM CHLORIDE [Suspect]
     Indication: HYPOKALAEMIA
     Dosage: 20 MEQ EVERY DAY PO
     Route: 048
     Dates: start: 20060524, end: 20080508
  3. POTASSIUM CHLORIDE [Suspect]
     Indication: PROPHYLAXIS
     Dosage: 20 MEQ EVERY DAY PO
     Route: 048
     Dates: start: 20060524, end: 20080508

REACTIONS (7)
  - BLOOD CREATININE INCREASED [None]
  - BLOOD UREA INCREASED [None]
  - DIARRHOEA [None]
  - HYPERKALAEMIA [None]
  - HYPOTENSION [None]
  - NAUSEA [None]
  - ORAL INTAKE REDUCED [None]
